FAERS Safety Report 6296405-7 (Version None)
Quarter: 2009Q3

REPORT INFORMATION
  Report Type: 
  Country: None (occurrence: None)
  Receive Date: 20090803
  Receipt Date: 20090803
  Transmission Date: 20100115
  Serious: Yes (Disabling)
  Sender: FDA-Public Use
  Company Number: None

PATIENT
  Sex: Female
  Weight: 84.8226 kg

DRUGS (1)
  1. GEODON [Suspect]
     Indication: BIPOLAR DISORDER
     Dosage: 80 MG 2X PO
     Route: 048
     Dates: start: 20090203, end: 20090628

REACTIONS (2)
  - BLOOD PROLACTIN INCREASED [None]
  - PITUITARY TUMOUR [None]
